FAERS Safety Report 24408104 (Version 1)
Quarter: 2024Q4

REPORT INFORMATION
  Report Type: Spontaneous
  Country: US (occurrence: US)
  Receive Date: 20241007
  Receipt Date: 20241007
  Transmission Date: 20250115
  Serious: No
  Sender: PFIZER
  Company Number: US-PFIZER INC-202400270130

PATIENT
  Age: 3 Month
  Sex: Female
  Weight: 6.349 kg

DRUGS (3)
  1. EUCRISA [Suspect]
     Active Substance: CRISABOROLE
     Indication: Eczema
     Dosage: UNK
     Dates: start: 20241003
  2. EUCRISA [Suspect]
     Active Substance: CRISABOROLE
     Indication: Dermatitis
  3. KETOCONAZOLE [Concomitant]
     Active Substance: KETOCONAZOLE
     Indication: Seborrhoeic dermatitis
     Dosage: UNK

REACTIONS (4)
  - Application site erythema [Unknown]
  - Screaming [Recovering/Resolving]
  - Burning sensation [Unknown]
  - Off label use [Unknown]

NARRATIVE: CASE EVENT DATE: 20241003
